FAERS Safety Report 24971384 (Version 1)
Quarter: 2025Q1

REPORT INFORMATION
  Report Type: Spontaneous
  Country: IE (occurrence: None)
  Receive Date: 20250214
  Receipt Date: 20250214
  Transmission Date: 20250409
  Serious: Yes (Hospitalization)
  Sender: FDA-CTU
  Company Number: None

PATIENT
  Age: 53 Year
  Sex: Female
  Weight: 64 kg

DRUGS (1)
  1. AZITHROMYCIN [Suspect]
     Active Substance: AZITHROMYCIN
     Indication: Sinusitis
     Dosage: OTHER QUANTITY : 2 TABLET(S);?FREQUENCY : DAILY;?
     Route: 048
     Dates: start: 20250212, end: 20250213

REACTIONS (8)
  - Malaise [None]
  - Blood pressure increased [None]
  - Heart rate [None]
  - Paraesthesia [None]
  - Abdominal pain upper [None]
  - Vomiting [None]
  - Dizziness [None]
  - Abdominal pain upper [None]

NARRATIVE: CASE EVENT DATE: 20250212
